FAERS Safety Report 5194700-6 (Version None)
Quarter: 2006Q4

REPORT INFORMATION
  Report Type: 
  Country: None (occurrence: None)
  Receive Date: 20061229
  Receipt Date: 20061121
  Transmission Date: 20070319
  Serious: Yes (Hospitalization, Other)
  Sender: FDA-Public Use
  Company Number: PHBS2006JP18239

PATIENT
  Age: 77 Year
  Sex: Male
  Weight: 64 kg

DRUGS (7)
  1. BUFFERIN [Suspect]
     Indication: ACUTE MYOCARDIAL INFARCTION
     Dosage: 162 MG/DAY
     Route: 048
     Dates: start: 20061110
  2. PANALDINE [Suspect]
     Indication: ACUTE MYOCARDIAL INFARCTION
     Dosage: 200 MG/DAY
     Route: 048
     Dates: start: 20061111, end: 20061120
  3. OMEPRAL [Suspect]
     Indication: GASTRIC ULCER
     Dosage: 20 MG/DAY
     Route: 048
     Dates: start: 20061111, end: 20061120
  4. EUGLUCON [Suspect]
     Indication: DIABETES MELLITUS
     Dosage: 2.5 MG/DAY
     Route: 048
     Dates: start: 20061111, end: 20061120
  5. DIOVAN [Suspect]
     Indication: HYPERTENSION
     Dosage: 80 MG/DAY
     Route: 048
     Dates: start: 20061116, end: 20061120
  6. DIOVAN [Suspect]
     Dosage: 80 MG/DAY
     Route: 048
     Dates: start: 20061116, end: 20061120
  7. RENIVACE [Suspect]
     Indication: HYPERTENSION
     Dosage: 5 MG/DAY
     Route: 048
     Dates: start: 20061111, end: 20061115

REACTIONS (14)
  - ASPARTATE AMINOTRANSFERASE INCREASED [None]
  - BLOOD GLUCOSE INCREASED [None]
  - BLOOD LACTATE DEHYDROGENASE INCREASED [None]
  - C-REACTIVE PROTEIN INCREASED [None]
  - CATHETERISATION CARDIAC [None]
  - CHEST X-RAY ABNORMAL [None]
  - COUGH [None]
  - HAEMATOCRIT DECREASED [None]
  - HAEMOGLOBIN DECREASED [None]
  - INTERSTITIAL LUNG DISEASE [None]
  - OXYGEN SATURATION DECREASED [None]
  - PYREXIA [None]
  - RED BLOOD CELL COUNT DECREASED [None]
  - WHITE BLOOD CELL COUNT INCREASED [None]
